FAERS Safety Report 6151497-0 (Version None)
Quarter: 2009Q2

REPORT INFORMATION
  Report Type: 
  Country: None (occurrence: None)
  Receive Date: 20090410
  Receipt Date: 20090401
  Transmission Date: 20091009
  Serious: Yes (Other)
  Sender: FDA-Public Use
  Company Number: GB-JNJFOC-20090400887

PATIENT
  Sex: Male

DRUGS (3)
  1. REMICADE [Suspect]
     Indication: RHEUMATOID ARTHRITIS
     Route: 042
  2. HYDROCORTISONE [Concomitant]
     Indication: PREMEDICATION
  3. PURITIN [Concomitant]
     Indication: PREMEDICATION

REACTIONS (4)
  - AGITATION [None]
  - FEELING HOT [None]
  - FLUSHING [None]
  - INFUSION RELATED REACTION [None]
